FAERS Safety Report 15710643 (Version 1)
Quarter: 2018Q4

REPORT INFORMATION
  Report Type: Spontaneous
  Country: CN (occurrence: CN)
  Receive Date: 20181211
  Receipt Date: 20181211
  Transmission Date: 20190205
  Serious: Yes (Hospitalization)
  Sender: FDA-Public Use
  Company Number: CN-NOVOPROD-636236

PATIENT
  Age: 29 Year
  Sex: Female
  Weight: 74 kg

DRUGS (2)
  1. NOVORAPID [Concomitant]
     Active Substance: INSULIN ASPART
     Indication: TYPE 2 DIABETES MELLITUS
     Dosage: 27 U, QD (7U IN THE MORNING, 10 U AT NOON AND 10 U IN THE EVENING, TID, BEFORE MEALS, SUBCUTANEOUSL)
     Route: 058
     Dates: start: 20180818
  2. LEVEMIR [Suspect]
     Active Substance: INSULIN DETEMIR
     Indication: TYPE 2 DIABETES MELLITUS
     Dosage: 18 IU, QD (BEFORE THREE MEALS)
     Route: 058
     Dates: start: 20180818, end: 20180911

REACTIONS (4)
  - Chest discomfort [Recovered/Resolved]
  - Swelling [Recovered/Resolved]
  - Skin reaction [Recovered/Resolved]
  - Erythema [Recovered/Resolved]

NARRATIVE: CASE EVENT DATE: 20180822
